FAERS Safety Report 24033464 (Version 1)
Quarter: 2024Q3

REPORT INFORMATION
  Report Type: Spontaneous
  Country: US (occurrence: US)
  Receive Date: 20240701
  Receipt Date: 20240701
  Transmission Date: 20241016
  Serious: No
  Sender: UCB
  Company Number: US-UCBSA-2024007006

PATIENT
  Sex: Female

DRUGS (5)
  1. KEPPRA [Suspect]
     Active Substance: LEVETIRACETAM
     Indication: Seizure
     Dosage: UNK
  2. BRIVIACT [Suspect]
     Active Substance: BRIVARACETAM
     Indication: Seizure
     Dosage: 100 MILLIGRAM, 2X/DAY (BID)
  3. NAYZILAM [Suspect]
     Active Substance: MIDAZOLAM
     Indication: Seizure
     Dosage: MAY REPEAT X 1 AFTER 10 MIN OPPOSITE NOSTRIL. NO MORE THAN 2 DOSES
  4. SUMATRIPTAN [Concomitant]
     Active Substance: SUMATRIPTAN
     Indication: Headache
     Dosage: 100 MILLIGRAM, ONCE DAILY (QD)
  5. AJOVY [Concomitant]
     Active Substance: FREMANEZUMAB-VFRM
     Indication: Headache
     Dosage: 225 MG/1.5 ML, AUTOINJECTOR, 1 INJECTION , MONTHLY (QM)
     Route: 058

REACTIONS (3)
  - Alopecia [Unknown]
  - Drug ineffective [Unknown]
  - Drug intolerance [Unknown]
